FAERS Safety Report 7278688-X (Version None)
Quarter: 2011Q1

REPORT INFORMATION
  Report Type: 
  Country: None (occurrence: None)
  Receive Date: 20110207
  Receipt Date: 20110125
  Transmission Date: 20110831
  Serious: Yes (Other)
  Sender: FDA-Public Use
  Company Number: PHHY2011GB07649

PATIENT

DRUGS (1)
  1. SIMVASTATIN [Suspect]
     Route: 064

REACTIONS (2)
  - FOETAL DISTRESS SYNDROME [None]
  - DRUG EXPOSURE DURING PREGNANCY [None]
